FAERS Safety Report 9592038 (Version 1)
Quarter: 2013Q4

REPORT INFORMATION
  Report Type: Spontaneous
  Country: US (occurrence: US)
  Receive Date: 20131004
  Receipt Date: 20131004
  Transmission Date: 20140711
  Serious: No
  Sender: FDA-Public Use
  Company Number: US-BIOGENIDEC-2013BI091965

PATIENT
  Sex: Male

DRUGS (1)
  1. AVONEX [Suspect]
     Indication: MULTIPLE SCLEROSIS
     Route: 030
     Dates: start: 20040501

REACTIONS (5)
  - Tremor [Unknown]
  - Hallucination [Unknown]
  - Chills [Unknown]
  - Pyrexia [Unknown]
  - Influenza like illness [Unknown]
